FAERS Safety Report 4570525-7 (Version None)
Quarter: 2005Q1

REPORT INFORMATION
  Report Type: 
  Country: None (occurrence: None)
  Receive Date: 20050202
  Receipt Date: 20050120
  Transmission Date: 20050727
  Serious: Yes (Life-Threatening)
  Sender: FDA-Public Use
  Company Number: 2005-BP-00850AU

PATIENT
  Sex: 0

DRUGS (1)
  1. MICARDIS HCT [Suspect]
     Dosage: 80/12.5 MG/MG (SEE TEXT, 80MG/12/5MG AS A SINGLE DOSE ONLY (STRENGTH: 80/12.5 MG/MG) 1 DOSE
     Route: 048
     Dates: start: 20040910, end: 20040910

REACTIONS (1)
  - ANAPHYLACTIC SHOCK [None]
